FAERS Safety Report 7062195-3 (Version None)
Quarter: 2010Q4

REPORT INFORMATION
  Report Type: 
  Country: None (occurrence: None)
  Receive Date: 20101026
  Receipt Date: 20101020
  Transmission Date: 20110411
  Serious: Yes (Hospitalization)
  Sender: FDA-Public Use
  Company Number: US-B.I. PHARMACEUTICALS,INC./RIDGEFIELD-2010-BP-11811BP

PATIENT
  Sex: Female

DRUGS (5)
  1. COMBIVENT [Suspect]
     Indication: DYSPNOEA
     Dosage: 8 PUF
     Route: 055
     Dates: start: 19900101
  2. GLYBURIDE [Concomitant]
     Indication: DIABETES MELLITUS
     Dosage: 8 MG
     Route: 048
  3. METFORMIN [Concomitant]
     Indication: DIABETES MELLITUS
     Dosage: 2000 MG
     Route: 048
  4. LORAZEPAM [Concomitant]
     Indication: ANXIETY
     Route: 048
  5. MEDICATION  NOT FURTHER SPECIFIED [Concomitant]
     Indication: ASTHMA

REACTIONS (9)
  - ABDOMINAL PAIN [None]
  - BLOOD CHOLESTEROL INCREASED [None]
  - GASTRIC PH DECREASED [None]
  - GASTROINTESTINAL DISORDER [None]
  - GASTROINTESTINAL INFECTION [None]
  - HYPERTENSION [None]
  - MUSCLE ATROPHY [None]
  - PNEUMONIA PRIMARY ATYPICAL [None]
  - WOUND DEHISCENCE [None]
